FAERS Safety Report 25086922 (Version 2)
Quarter: 2025Q2

REPORT INFORMATION
  Report Type: Spontaneous
  Country: US (occurrence: US)
  Receive Date: 20250318
  Receipt Date: 20250416
  Transmission Date: 20250717
  Serious: No
  Sender: Haleon PLC
  Company Number: US-HALEON-2233285

PATIENT

DRUGS (1)
  1. ADVIL [Suspect]
     Active Substance: IBUPROFEN
     Indication: Gastrooesophageal reflux disease
     Route: 048

REACTIONS (4)
  - Throat irritation [Unknown]
  - Product use in unapproved indication [Unknown]
  - Product physical issue [Unknown]
  - Poor quality product administered [Unknown]
